FAERS Safety Report 9577966 (Version 1)
Quarter: 2013Q4

REPORT INFORMATION
  Report Type: Spontaneous
  Country: US (occurrence: US)
  Receive Date: 20131001
  Receipt Date: 20131001
  Transmission Date: 20140711
  Serious: No
  Sender: FDA-Public Use
  Company Number: US-AMGEN-USASP2013010555

PATIENT
  Sex: Female

DRUGS (9)
  1. ENBREL [Suspect]
     Indication: RHEUMATOID ARTHRITIS
     Dosage: 50 MG, QWK
     Route: 058
  2. PREDNISONE [Concomitant]
     Dosage: 1 MG, UNK
  3. OMEPRAZOLE [Concomitant]
     Dosage: 10 MG, UNK
  4. AZATHIOPRINE [Concomitant]
     Dosage: 50 MG, UNK
  5. LISINOPRIL [Concomitant]
     Dosage: 2.5 MG, UNK
  6. METFORMIN [Concomitant]
     Dosage: 1000 MG, UNK
  7. LEVEMIR [Concomitant]
     Dosage: UNK, FLEXPEN
  8. MULTIVITAMINS, PLAIN [Concomitant]
     Dosage: UNK
  9. BIOTIN [Concomitant]
     Dosage: 5000 UNK, UNK

REACTIONS (1)
  - Eosinophilic fasciitis [Unknown]
